FAERS Safety Report 9353150 (Version 2)
Quarter: 2013Q3

REPORT INFORMATION
  Report Type: Spontaneous
  Country: IL (occurrence: IL)
  Receive Date: 20130618
  Receipt Date: 20130710
  Transmission Date: 20140515
  Serious: Yes (Other)
  Sender: FDA-Public Use
  Company Number: IL-INCYTE CORPORATION-2013IN001254

PATIENT
  Age: 66 Year
  Sex: Male

DRUGS (1)
  1. JAKAVI [Suspect]
     Dosage: 5 MG, BID (ONE TABLET IN THE MORNING, TWO TABLETS IN THE EVENING)
     Route: 065

REACTIONS (1)
  - Renal failure [Recovering/Resolving]
